FAERS Safety Report 13062764 (Version 1)
Quarter: 2016Q4

REPORT INFORMATION
  Report Type: Spontaneous
  Country: DE (occurrence: DE)
  Receive Date: 20161226
  Receipt Date: 20161226
  Transmission Date: 20170207
  Serious: Yes (Hospitalization)
  Sender: FDA-Public Use
  Company Number: PHHY2016DE177301

PATIENT
  Age: 56 Year
  Sex: Female

DRUGS (3)
  1. ENTRESTO [Suspect]
     Active Substance: SACUBITRIL\VALSARTAN
     Indication: CONGESTIVE CARDIOMYOPATHY
     Dosage: 50 MG (24/26 MG), BID
     Route: 048
     Dates: start: 201605
  2. ENTRESTO [Suspect]
     Active Substance: SACUBITRIL\VALSARTAN
     Indication: CARDIAC FAILURE
     Dosage: 100 MG (49/51 MG), BID
     Route: 048
     Dates: start: 20161128, end: 20161206
  3. ENTRESTO [Suspect]
     Active Substance: SACUBITRIL\VALSARTAN
     Indication: LEFT VENTRICULAR DYSFUNCTION

REACTIONS (1)
  - Ventricular fibrillation [Recovering/Resolving]

NARRATIVE: CASE EVENT DATE: 20161206
